FAERS Safety Report 8802308 (Version 1)
Quarter: 2012Q4

REPORT INFORMATION
  Report Type: 
  Country: US (occurrence: US)
  Receive Date: 20120921
  Receipt Date: 20120921
  Transmission Date: 20130627
  Serious: Yes (Other)
  Sender: FDA-Public Use
  Company Number: US-ABBOTT-12P-163-0984232-00

PATIENT
  Age: 62 Year
  Sex: Female

DRUGS (10)
  1. HUMIRA [Suspect]
     Indication: RHEUMATOID ARTHRITIS
  2. RITUXIMAB [Suspect]
     Indication: RHEUMATOID ARTHRITIS
  3. ETANERCEPT [Suspect]
     Indication: RHEUMATOID ARTHRITIS
  4. METHOTREXATE [Suspect]
     Indication: LEUKOPENIA
  5. HYDROXYCHLOROQUINE [Suspect]
     Indication: RHEUMATOID ARTHRITIS
  6. GLUCOCORTICOIDS [Suspect]
     Indication: RHEUMATOID ARTHRITIS
  7. SULFASALAZINE [Suspect]
     Indication: RHEUMATOID ARTHRITIS
  8. LEFLUNOMIDE [Suspect]
     Indication: RHEUMATOID ARTHRITIS
  9. ANAKINRA [Suspect]
     Indication: RHEUMATOID ARTHRITIS
  10. GOLD [Suspect]
     Indication: RHEUMATOID ARTHRITIS

REACTIONS (1)
  - Progressive multifocal leukoencephalopathy [Unknown]
